FAERS Safety Report 12184110 (Version 1)
Quarter: 2016Q1

REPORT INFORMATION
  Report Type: Spontaneous
  Country: US (occurrence: US)
  Receive Date: 20160316
  Receipt Date: 20160316
  Transmission Date: 20160526
  Serious: No
  Sender: FDA-Public Use
  Company Number: US-SA-2015SA046972

PATIENT
  Age: 82 Year
  Sex: Female

DRUGS (1)
  1. BCG FOR IMMUNOTHERAPY [Suspect]
     Active Substance: BACILLUS CALMETTE-GUERIN ANTIGEN, UNSPECIFIED SUBSTRAIN
     Indication: MALIGNANT MELANOMA
     Route: 065

REACTIONS (3)
  - Injection site reaction [Unknown]
  - Skin lesion [Unknown]
  - Skin mass [Unknown]
